FAERS Safety Report 5577011-6 (Version None)
Quarter: 2007Q4

REPORT INFORMATION
  Report Type: 
  Country: None (occurrence: None)
  Receive Date: 20071228
  Receipt Date: 20071221
  Transmission Date: 20080405
  Serious: Yes (Other)
  Sender: FDA-Public Use
  Company Number: US-GENENTECH-251132

PATIENT
  Sex: Male
  Weight: 71.837 kg

DRUGS (4)
  1. AVASTIN [Suspect]
     Indication: COLON CANCER
     Dosage: 375 MG, Q2W
     Route: 042
     Dates: start: 20061025
  2. OXALIPLATIN [Concomitant]
     Indication: COLON CANCER
     Dosage: 164 MG, UNK
     Dates: start: 20061026
  3. FLUOROURACIL [Concomitant]
     Indication: COLON CANCER
     Dosage: 1158 MG, UNK
     Dates: start: 20061025
  4. LEUCOVORIN [Concomitant]
     Indication: COLON CANCER
     Dosage: 386 MG, UNK
     Dates: start: 20070925

REACTIONS (1)
  - INTERSTITIAL LUNG DISEASE [None]
